FAERS Safety Report 6380276-4 (Version None)
Quarter: 2009Q3

REPORT INFORMATION
  Report Type: 
  Country: None (occurrence: None)
  Receive Date: 20090929
  Receipt Date: 20090917
  Transmission Date: 20100115
  Serious: Yes (Other)
  Sender: FDA-Public Use
  Company Number: BR-ROCHE-656027

PATIENT
  Sex: Female
  Weight: 94 kg

DRUGS (10)
  1. XENICAL [Suspect]
     Indication: HEPATIC STEATOSIS
     Dosage: FREQ: AFTER LUNCH AND AFTER DINNER
     Route: 065
     Dates: end: 20080101
  2. PROPATYLNITRATE [Concomitant]
  3. CLOPIDOGREL BISULFATE [Concomitant]
  4. METFORMIN HYDROCHLORIDE [Concomitant]
  5. METOPROLOL SUCCINATE [Concomitant]
  6. ACETYLSALICYLIC ACID [Concomitant]
  7. ALPRAZOLAM [Concomitant]
  8. CRESTOR [Concomitant]
  9. OMEPRAZOLE [Concomitant]
  10. AMLODIPINE/VALSARTAN [Concomitant]
     Dosage: DRUG:

REACTIONS (4)
  - ANAEMIA [None]
  - CARDIAC DISORDER [None]
  - SERUM FERRITIN INCREASED [None]
  - WEIGHT INCREASED [None]
